FAERS Safety Report 7071072-3 (Version None)
Quarter: 2010Q4

REPORT INFORMATION
  Report Type: 
  Country: None (occurrence: None)
  Receive Date: 20101029
  Receipt Date: 20101025
  Transmission Date: 20110411
  Serious: No
  Sender: FDA-Public Use
  Company Number: US-PFIZER INC-2010136137

PATIENT
  Age: 6 Year
  Sex: Male

DRUGS (1)
  1. ZOLOFT [Suspect]
     Indication: AUTISM
     Dosage: UNK

REACTIONS (1)
  - RETCHING [None]
